FAERS Safety Report 12389359 (Version 1)
Quarter: 2016Q2

REPORT INFORMATION
  Report Type: Spontaneous
  Country: US (occurrence: US)
  Receive Date: 20160520
  Receipt Date: 20160520
  Transmission Date: 20160815
  Serious: Yes (Other)
  Sender: FDA-Public Use
  Company Number: US-TRIBUTE PHARMACEUTICALS CANADA INC.-TPI-FIB-US-2016-01

PATIENT
  Sex: Male
  Weight: 117.59 kg

DRUGS (1)
  1. FIBRICOR [Suspect]
     Active Substance: FENOFIBRIC ACID
     Indication: PRODUCT USED FOR UNKNOWN INDICATION
     Route: 065
     Dates: start: 20160419, end: 2016

REACTIONS (2)
  - Hypersensitivity [Unknown]
  - Swelling face [Unknown]

NARRATIVE: CASE EVENT DATE: 2016
